FAERS Safety Report 6379899-8 (Version None)
Quarter: 2009Q3

REPORT INFORMATION
  Report Type: 
  Country: None (occurrence: None)
  Receive Date: 20090928
  Receipt Date: 20090924
  Transmission Date: 20100115
  Serious: Yes (Death, Life-Threatening, Hospitalization)
  Sender: FDA-Public Use
  Company Number: PHHO2009FR10791

PATIENT
  Sex: Male

DRUGS (7)
  1. RAD 666 RAD+TAB [Suspect]
     Indication: RENAL CANCER METASTATIC
     Dosage: 10 MG/DAY
     Route: 048
     Dates: start: 20090612, end: 20090822
  2. ANTIBIOTICS [Concomitant]
  3. LYRICA [Concomitant]
  4. LEVOTHYROXINE SODIUM [Concomitant]
  5. SOLUPRED [Concomitant]
  6. LIPANTHYL [Concomitant]
  7. SERESTA [Suspect]

REACTIONS (2)
  - LUNG DISORDER [None]
  - PYREXIA [None]
